FAERS Safety Report 7112637-X (Version None)
Quarter: 2010Q4

REPORT INFORMATION
  Report Type: 
  Country: None (occurrence: None)
  Receive Date: 20101119
  Receipt Date: 20100521
  Transmission Date: 20110411
  Serious: No
  Sender: FDA-Public Use
  Company Number: US-TEVA-235917USA

PATIENT
  Sex: Female
  Weight: 76.272 kg

DRUGS (2)
  1. ALBUTEROL SULFATE AUTOHALER [Suspect]
     Dosage: 2 PUFFS
     Route: 055
  2. AMLODIPINE [Concomitant]

REACTIONS (1)
  - DRUG INEFFECTIVE [None]
